FAERS Safety Report 5305343-5 (Version None)
Quarter: 2007Q2

REPORT INFORMATION
  Report Type: 
  Country: None (occurrence: None)
  Receive Date: 20070424
  Receipt Date: 20070413
  Transmission Date: 20071010
  Serious: Yes (Other)
  Sender: FDA-Public Use
  Company Number: PHBS2005IT15088

PATIENT
  Age: 64 Year
  Sex: Female

DRUGS (4)
  1. ZOLEDRONATE [Suspect]
     Indication: METASTASES TO BONE
     Dosage: 4 MG, QMO
     Route: 042
     Dates: start: 20020401, end: 20040201
  2. GEMCITABINE HCL [Concomitant]
     Route: 065
     Dates: start: 20020301, end: 20040101
  3. VINORELBINE [Concomitant]
     Route: 065
     Dates: start: 20020301, end: 20040101
  4. PAMIDRONATE DISODIUM [Suspect]
     Indication: METASTASES TO BONE
     Dosage: 90 MG, QMO
     Route: 042
     Dates: start: 20010201, end: 20020401

REACTIONS (9)
  - BONE DEBRIDEMENT [None]
  - BONE DISORDER [None]
  - LOCAL ANAESTHESIA [None]
  - OSTEITIS [None]
  - OSTEONECROSIS [None]
  - PAIN [None]
  - SURGERY [None]
  - TOOTH EXTRACTION [None]
  - ULCER [None]
